FAERS Safety Report 15714182 (Version 2)
Quarter: 2018Q4

REPORT INFORMATION
  Report Type: Report from Study
  Country: JP (occurrence: JP)
  Receive Date: 20181212
  Receipt Date: 20181214
  Transmission Date: 20190205
  Serious: Yes (Death, Hospitalization)
  Sender: FDA-Public Use
  Company Number: JP-MITSUBISHI TANABE PHARMA CORPORATION-MTPC2018-0034641

PATIENT
  Age: 77 Year
  Sex: Female
  Weight: 36 kg

DRUGS (2)
  1. RILUZOLE. [Concomitant]
     Active Substance: RILUZOLE
     Indication: AMYOTROPHIC LATERAL SCLEROSIS
     Route: 048
     Dates: start: 20170912, end: 20170927
  2. RADICUT [Suspect]
     Active Substance: EDARAVONE
     Indication: AMYOTROPHIC LATERAL SCLEROSIS
     Route: 041
     Dates: start: 20170829, end: 20170911

REACTIONS (4)
  - Dehydration [Fatal]
  - Decreased appetite [Unknown]
  - No adverse event [Unknown]
  - Prerenal failure [Fatal]

NARRATIVE: CASE EVENT DATE: 201709
